FAERS Safety Report 8463250-3 (Version None)
Quarter: 2012Q2

REPORT INFORMATION
  Report Type: 
  Country: None (occurrence: None)
  Receive Date: 20120620
  Receipt Date: 20120607
  Transmission Date: 20120825
  Serious: Yes (Death)
  Sender: FDA-Public Use
  Company Number: ADR-UNK-062

PATIENT
  Sex: Female

DRUGS (2)
  1. LAMIVUDINE/ZIDOVUDINE [Suspect]
     Indication: ACQUIRED IMMUNODEFICIENCY SYNDROME
     Dosage: 2 TABS/CAPS/ORAL
     Route: 048
     Dates: start: 20110324
  2. LOPINAVIR+RITONAVIR (KALETRA, ALUVIA, LPV) [Concomitant]

REACTIONS (2)
  - STILLBIRTH [None]
  - MATERNAL EXPOSURE DURING PREGNANCY [None]
